FAERS Safety Report 5840654-6 (Version None)
Quarter: 2008Q3

REPORT INFORMATION
  Report Type: 
  Country: None (occurrence: None)
  Receive Date: 20080811
  Receipt Date: 20080730
  Transmission Date: 20090109
  Serious: Yes (Other)
  Sender: FDA-Public Use
  Company Number: PHEH2008US06812

PATIENT
  Sex: Male

DRUGS (8)
  1. FOCALIN XR [Suspect]
     Dosage: 10 MG, QD
     Route: 048
     Dates: start: 20080707
  2. CLONIDINE [Suspect]
     Dosage: 1/2 TAB TWICE DAILY, 2 TABS AT BEDTIME
     Route: 048
  3. ZYPREXA [Concomitant]
     Dosage: 5 MG, UNK
  4. TRAMADOL HCL [Concomitant]
     Dosage: 50 MG, UNK
  5. SEROQUEL [Concomitant]
     Dosage: 25 MG, UNK
  6. PROMETHAZINE [Concomitant]
  7. LEVOTHYROXINE SODIUM [Concomitant]
     Dosage: .05 MG, UNK
  8. LEVOTHYROXINE SODIUM [Concomitant]
     Dosage: 0.2 MG, UNK

REACTIONS (3)
  - DIPLOPIA [None]
  - HEADACHE [None]
  - NAUSEA [None]
